FAERS Safety Report 5298103-5 (Version None)
Quarter: 2007Q2

REPORT INFORMATION
  Report Type: 
  Country: None (occurrence: None)
  Receive Date: 20070416
  Receipt Date: 20070405
  Transmission Date: 20071010
  Serious: Yes (Other)
  Sender: FDA-Public Use
  Company Number: US-ELI_LILLY_AND_COMPANY-US200704001426

PATIENT
  Age: 60 Year
  Sex: Female
  Weight: 81.179 kg

DRUGS (1)
  1. HUMATROPE [Suspect]
     Indication: HYPERPITUITARISM
     Dosage: 0.4 MG, UNK
     Dates: start: 20061101

REACTIONS (5)
  - BRAIN NEOPLASM [None]
  - CRYING [None]
  - ENERGY INCREASED [None]
  - NERVOUSNESS [None]
  - WEIGHT DECREASED [None]
